FAERS Safety Report 9528009 (Version 1)
Quarter: 2013Q1

REPORT INFORMATION
  Report Type: Spontaneous
  Country: US (occurrence: None)
  Receive Date: 20130314
  Receipt Date: 20130314
  Transmission Date: 20140127
  Serious: No
  Sender: FDA-Public Use
  Company Number: 1211USA008932

PATIENT
  Age: 63 Year
  Sex: Male
  Weight: 65.8 kg

DRUGS (7)
  1. VICTRELIS (BOCEPREVIR) CAPSULE, 200MG [Suspect]
     Route: 048
  2. PEG-INTRON (PEGINTERFERON ALFA-2B) POWDER FOR INJECTION [Suspect]
     Route: 058
  3. RIBAVIRIN [Suspect]
     Route: 048
  4. LISINOPRIL (LISINOPRIL) [Concomitant]
  5. OMEPRAZOLE (OMEPRAZOLE) 10MG [Concomitant]
  6. METOPROLOL (METOPROLOL) TABLET 200MG [Concomitant]
  7. WARFARIN (WARFARIN) 10MG [Concomitant]

REACTIONS (4)
  - Asthenia [None]
  - Dyspnoea [None]
  - Rash [None]
  - Dysgeusia [None]
